FAERS Safety Report 5112662-4 (Version None)
Quarter: 2006Q3

REPORT INFORMATION
  Report Type: 
  Country: None (occurrence: None)
  Receive Date: 20060922
  Receipt Date: 20020520
  Transmission Date: 20061208
  Serious: Yes (Hospitalization)
  Sender: FDA-Public Use
  Company Number: PHBS2002JP06013

PATIENT
  Age: 47 Year
  Sex: Female

DRUGS (8)
  1. STARSIS #AJ [Suspect]
     Indication: DIABETES MELLITUS
     Dosage: 90 MG/DAY
     Route: 048
     Dates: start: 20010801, end: 20010904
  2. MEVALOTIN [Suspect]
     Indication: HYPERCHOLESTEROLAEMIA
     Dosage: 5 MG/DAY
     Route: 048
     Dates: start: 20010824, end: 20010904
  3. SLOW-K [Suspect]
     Dosage: 0.5 G/DAY
     Route: 048
     Dates: start: 20010815, end: 20010904
  4. PREDONINE [Concomitant]
     Dosage: 50 MG/DAY
  5. PREDONINE [Concomitant]
     Dosage: 40 MG/DAY
  6. PREDONINE [Concomitant]
     Dosage: 30 MG/DAY
     Dates: start: 20010814
  7. TAGAMET [Concomitant]
  8. BACTRIM [Concomitant]

REACTIONS (2)
  - CONDITION AGGRAVATED [None]
  - PEMPHIGOID [None]
